FAERS Safety Report 4771555-2 (Version None)
Quarter: 2005Q3

REPORT INFORMATION
  Report Type: 
  Country: None (occurrence: None)
  Receive Date: 20050914
  Receipt Date: 20050914
  Transmission Date: 20060218
  Serious: Yes (Disabling)
  Sender: FDA-Public Use
  Company Number: None

PATIENT
  Sex: Female
  Weight: 64.8644 kg

DRUGS (3)
  1. GENTAMICIN [Suspect]
     Indication: INFECTION
     Dosage: 500 MG IV EVERY 24 HRS
  2. GENTAMICIN [Suspect]
     Indication: SPINAL DISORDER
     Dosage: 500 MG IV EVERY 24 HRS
  3. CLINDAMYCIN IV [Concomitant]

REACTIONS (6)
  - BALANCE DISORDER [None]
  - FEELING ABNORMAL [None]
  - OSCILLOPSIA [None]
  - STRESS [None]
  - TREMOR [None]
  - VESTIBULAR DISORDER [None]
